FAERS Safety Report 24422260 (Version 1)
Quarter: 2024Q4

REPORT INFORMATION
  Report Type: Spontaneous
  Country: JP (occurrence: JP)
  Receive Date: 20241010
  Receipt Date: 20241010
  Transmission Date: 20250114
  Serious: Yes (Hospitalization, Other)
  Sender: GLAXOSMITHKLINE
  Company Number: JP-GSKJP-JP2024JPN078745AA

PATIENT

DRUGS (11)
  1. DAPRODUSTAT [Suspect]
     Active Substance: DAPRODUSTAT
     Indication: Nephrogenic anaemia
     Dosage: 6 MG, 1D
     Route: 048
     Dates: start: 20240424, end: 202405
  2. DAPRODUSTAT [Suspect]
     Active Substance: DAPRODUSTAT
     Dosage: 8 MG, 1D
     Route: 048
     Dates: start: 20240514, end: 20240527
  3. MOSAPRIDE CITRATE [Concomitant]
     Active Substance: MOSAPRIDE CITRATE
     Indication: Gastric ulcer
     Dosage: 5 MG, TID, AFTER BREAKFAST, LUNCH, DINNER
  4. MOVICOL [Concomitant]
     Active Substance: POLYETHYLENE GLYCOL 3350\POTASSIUM CHLORIDE\SODIUM BICARBONATE\SODIUM CHLORIDE
     Indication: Constipation
     Dosage: 1 DF, 1D, 6.8523 G, AFTER BREAKFAST
  5. LANSOPRAZOLE [Concomitant]
     Active Substance: LANSOPRAZOLE
     Indication: Gastric ulcer
     Dosage: 30 MG, 1D, AFTER BREAKFAST
  6. ASPIRIN [Concomitant]
     Active Substance: ASPIRIN
     Dosage: 100 MG, 1D, AFTER BREAKFAST
  7. PITAVASTATIN CALCIUM [Concomitant]
     Active Substance: PITAVASTATIN CALCIUM
     Indication: Dyslipidaemia
     Dosage: 2 MG, 1D, AFTER BREAKFAST
  8. LANTHANUM CARBONATE [Concomitant]
     Active Substance: LANTHANUM CARBONATE
     Indication: Hyperphosphataemia
     Dosage: 250 MG, 1D, AFTRE DINNER
  9. ENTRESTO [Concomitant]
     Active Substance: SACUBITRIL\VALSARTAN
     Indication: Hypertension
     Dosage: 100 MG, 1D, AFTER DINNER
  10. BISOPROLOL FUMARATE [Concomitant]
     Active Substance: BISOPROLOL FUMARATE
     Indication: Hypertension
     Dosage: 0.625 MG, 1D, AFTER DINNER
  11. NALFURAFINE HYDROCHLORIDE [Concomitant]
     Active Substance: NALFURAFINE HYDROCHLORIDE
     Indication: Pruritus
     Dosage: 2.5 ?G, 1D, AFTER DINNER

REACTIONS (8)
  - Deep vein thrombosis [Recovering/Resolving]
  - Oedema peripheral [Recovering/Resolving]
  - Movement disorder [Unknown]
  - Loss of personal independence in daily activities [Unknown]
  - Haemoglobin increased [Unknown]
  - Iron deficiency [Unknown]
  - Product use issue [Unknown]
  - Off label use [Unknown]

NARRATIVE: CASE EVENT DATE: 20240523
